FAERS Safety Report 17158844 (Version 1)
Quarter: 2019Q4

REPORT INFORMATION
  Report Type: Spontaneous
  Country: US (occurrence: US)
  Receive Date: 20191216
  Receipt Date: 20191216
  Transmission Date: 20200122
  Serious: Yes (Other)
  Sender: FDA-Public Use
  Company Number: US-MYLANLABS-2019M1122814

PATIENT
  Sex: Female

DRUGS (2)
  1. YUPELRI [Suspect]
     Active Substance: REVEFENACIN
     Dosage: UNK
     Route: 055
     Dates: start: 20191206
  2. YUPELRI [Suspect]
     Active Substance: REVEFENACIN
     Indication: PRODUCT USED FOR UNKNOWN INDICATION
     Dosage: UNK
     Route: 055
     Dates: start: 20191205

REACTIONS (2)
  - Lip blister [Unknown]
  - Hypertensive urgency [Unknown]

NARRATIVE: CASE EVENT DATE: 20191205
